FAERS Safety Report 24590216 (Version 2)
Quarter: 2024Q4

REPORT INFORMATION
  Report Type: Spontaneous
  Country: DO (occurrence: DO)
  Receive Date: 20241107
  Receipt Date: 20241227
  Transmission Date: 20250114
  Serious: No
  Sender: PFIZER
  Company Number: DO-PFIZER INC-202400293521

PATIENT
  Age: 14 Year
  Sex: Male

DRUGS (1)
  1. GENOTROPIN [Suspect]
     Active Substance: SOMATROPIN
     Indication: Growth hormone deficiency
     Dosage: 2 MG, DAILY AT NIGHT
     Dates: start: 20241017

REACTIONS (3)
  - Device use error [Unknown]
  - Device breakage [Unknown]
  - Product dose omission issue [Unknown]

NARRATIVE: CASE EVENT DATE: 20241101
